FAERS Safety Report 9293626 (Version 1)
Quarter: 2013Q2

REPORT INFORMATION
  Report Type: Spontaneous
  Country: US (occurrence: US)
  Receive Date: 20130516
  Receipt Date: 20130516
  Transmission Date: 20140414
  Serious: No
  Sender: FDA-Public Use
  Company Number: US-BANPHARM-20120291

PATIENT
  Age: 24 Year
  Sex: Female
  Weight: 136.08 kg

DRUGS (1)
  1. IBUPROFEN CAPSULES 200 MG [Suspect]
     Indication: MIGRAINE
     Dosage: UNK, PRN,
     Route: 048
     Dates: start: 20120828, end: 20121029

REACTIONS (2)
  - Drug ineffective [Unknown]
  - Therapeutic response unexpected with drug substitution [Unknown]
